FAERS Safety Report 5040803-6 (Version None)
Quarter: 2006Q2

REPORT INFORMATION
  Report Type: 
  Country: None (occurrence: None)
  Receive Date: 20060629
  Receipt Date: 20060629
  Transmission Date: 20061013
  Serious: Yes (Disabling)
  Sender: FDA-Public Use
  Company Number: None

PATIENT
  Sex: Male
  Weight: 114.76 kg

DRUGS (9)
  1. PRAZOSIN HCL [Suspect]
     Indication: NIGHTMARE
     Dosage: 3MG  HS  PO
     Route: 048
     Dates: start: 20060519, end: 20060623
  2. PRAZOSIN HCL [Suspect]
     Indication: POST-TRAUMATIC STRESS DISORDER
     Dosage: 3MG  HS  PO
     Route: 048
     Dates: start: 20060519, end: 20060623
  3. LISINOPRIL [Concomitant]
  4. LOVASTATIN [Concomitant]
  5. METFORMIN [Concomitant]
  6. NAPROXEN [Concomitant]
  7. OMEGA-3-N-3-POLYUNSAT FATTY ACID [Concomitant]
  8. PAROXETINE HCL [Concomitant]
  9. TRAZODONE HCL [Concomitant]

REACTIONS (2)
  - ENURESIS [None]
  - THERAPY REGIMEN CHANGED [None]
